FAERS Safety Report 19677490 (Version 15)
Quarter: 2022Q1

REPORT INFORMATION
  Report Type: Report from Study
  Country: CN (occurrence: None)
  Receive Date: 20210810
  Receipt Date: 20220131
  Transmission Date: 20220423
  Serious: Yes (Death, Hospitalization)
  Sender: FDA-Public Use
  Company Number: CN-ROCHE-2848877

PATIENT
  Age: 67 Year
  Sex: Female
  Weight: 48 kg

DRUGS (126)
  1. TIRAGOLUMAB [Suspect]
     Active Substance: TIRAGOLUMAB
     Indication: Oesophageal squamous cell carcinoma metastatic
     Dosage: ON 31/MAY/2021 SHE RECEIVED THE MOST RECENT DOSE OF BLINDED TIRAGOLUMAB,
     Route: 042
     Dates: start: 20210531
  2. ATEZOLIZUMAB [Suspect]
     Active Substance: ATEZOLIZUMAB
     Indication: Oesophageal squamous cell carcinoma metastatic
     Dosage: ON 31/MAY/2021 SHE RECEIVED THE MOST RECENT DOSE OF BLINDED ATEZOLIZUMAB.
     Route: 042
     Dates: start: 20210531
  3. CISPLATIN [Suspect]
     Active Substance: CISPLATIN
     Indication: Oesophageal squamous cell carcinoma metastatic
     Dosage: ON 31/MAY/2021 SHE RECEIVED THE MOST RECENT DOSE (90 MG) OF CISPLATIN PRIOR TO AE
     Route: 042
     Dates: start: 20210531
  4. PACLITAXEL [Suspect]
     Active Substance: PACLITAXEL
     Indication: Oesophageal squamous cell carcinoma metastatic
     Dosage: ON 31/MAY/2021 SHE RECEIVED THE MOST RECENT DOSE OF BLINDED PACLITAXEL,
     Route: 042
     Dates: start: 20210531
  5. MEGESTROL [Concomitant]
     Active Substance: MEGESTROL
     Dates: start: 20210625, end: 20210715
  6. ETHAMSYLATE [Concomitant]
     Active Substance: ETHAMSYLATE
     Indication: Haemostasis
     Dates: start: 20210630, end: 20210711
  7. SAMMY [Concomitant]
     Indication: Prophylaxis
     Dates: start: 20210531, end: 20210531
  8. SAMMY [Concomitant]
     Dates: start: 20210711, end: 20210711
  9. SAMMY [Concomitant]
     Dates: start: 20210624, end: 20210624
  10. SAMMY [Concomitant]
     Dates: start: 20210623, end: 20210623
  11. SAMMY [Concomitant]
     Dates: start: 20210619, end: 20210619
  12. SAMMY [Concomitant]
     Dates: start: 20210617, end: 20210617
  13. SAMMY [Concomitant]
     Dates: start: 20210702, end: 20210712
  14. SAMMY [Concomitant]
     Dates: start: 20210701, end: 20210701
  15. DEXAMETHASONE SODIUM PHOSPHATE [Concomitant]
     Active Substance: DEXAMETHASONE SODIUM PHOSPHATE
     Indication: Prophylaxis
     Route: 042
     Dates: start: 20210531, end: 20210531
  16. DEXAMETHASONE SODIUM PHOSPHATE [Concomitant]
     Active Substance: DEXAMETHASONE SODIUM PHOSPHATE
     Route: 042
     Dates: start: 20210531, end: 20210531
  17. DEXAMETHASONE SODIUM PHOSPHATE [Concomitant]
     Active Substance: DEXAMETHASONE SODIUM PHOSPHATE
     Route: 058
     Dates: start: 20210716, end: 20210716
  18. DEXAMETHASONE SODIUM PHOSPHATE [Concomitant]
     Active Substance: DEXAMETHASONE SODIUM PHOSPHATE
     Route: 042
     Dates: start: 20210626, end: 20210626
  19. DEXAMETHASONE SODIUM PHOSPHATE [Concomitant]
     Active Substance: DEXAMETHASONE SODIUM PHOSPHATE
     Route: 042
     Dates: start: 20210531, end: 20210531
  20. DEXAMETHASONE SODIUM PHOSPHATE [Concomitant]
     Active Substance: DEXAMETHASONE SODIUM PHOSPHATE
     Route: 042
     Dates: start: 20210705, end: 20210705
  21. DEXAMETHASONE SODIUM PHOSPHATE [Concomitant]
     Active Substance: DEXAMETHASONE SODIUM PHOSPHATE
     Route: 042
     Dates: start: 20210701, end: 20210701
  22. DEXAMETHASONE SODIUM PHOSPHATE [Concomitant]
     Active Substance: DEXAMETHASONE SODIUM PHOSPHATE
     Route: 042
     Dates: start: 20210629, end: 20210630
  23. CEFOPERAZONE\SULBACTAM SODIUM [Concomitant]
     Active Substance: CEFOPERAZONE\SULBACTAM SODIUM
     Route: 042
     Dates: start: 20210613, end: 20210705
  24. CEFOPERAZONE\SULBACTAM SODIUM [Concomitant]
     Active Substance: CEFOPERAZONE\SULBACTAM SODIUM
     Dates: start: 20210718, end: 20210720
  25. AMBROXOL HYDROCHLORIDE [Concomitant]
     Active Substance: AMBROXOL HYDROCHLORIDE
     Dosage: REDUCE PHLEGM
     Route: 042
     Dates: start: 20210613, end: 20210720
  26. AMBROXOL HYDROCHLORIDE [Concomitant]
     Active Substance: AMBROXOL HYDROCHLORIDE
     Route: 042
     Dates: start: 20210613, end: 20210613
  27. AMBROXOL HYDROCHLORIDE [Concomitant]
     Active Substance: AMBROXOL HYDROCHLORIDE
     Route: 042
     Dates: start: 20210615, end: 20210615
  28. DOXOFYLLINE [Concomitant]
     Active Substance: DOXOFYLLINE
     Indication: Cough
     Route: 042
     Dates: start: 20210613, end: 20210616
  29. DOXOFYLLINE [Concomitant]
     Active Substance: DOXOFYLLINE
     Indication: Wheezing
     Route: 042
     Dates: start: 20210720, end: 20210720
  30. DEXTROSE [Concomitant]
     Active Substance: DEXTROSE
     Dates: start: 20210613, end: 20210623
  31. DEXTROSE [Concomitant]
     Active Substance: DEXTROSE
     Dates: start: 20210612, end: 20210612
  32. DEXTROSE [Concomitant]
     Active Substance: DEXTROSE
     Dates: start: 20210611, end: 20210613
  33. DEXTROSE [Concomitant]
     Active Substance: DEXTROSE
     Dates: start: 20210614, end: 20210614
  34. DEXTROSE [Concomitant]
     Active Substance: DEXTROSE
     Dates: start: 20210701, end: 20210701
  35. VITAMIN C [Concomitant]
     Active Substance: ASCORBIC ACID
     Dates: start: 20210613, end: 20210623
  36. VITAMIN C [Concomitant]
     Active Substance: ASCORBIC ACID
     Dates: start: 20210714, end: 20210714
  37. VITAMIN B6 [Concomitant]
     Active Substance: PYRIDOXINE HYDROCHLORIDE
     Dates: start: 20210613, end: 20210623
  38. VITAMIN B6 [Concomitant]
     Active Substance: PYRIDOXINE HYDROCHLORIDE
     Dates: start: 20210714, end: 20210714
  39. ACETYLCYSTEINE [Concomitant]
     Active Substance: ACETYLCYSTEINE
     Route: 055
     Dates: start: 20210613, end: 20210624
  40. SULFAMETHOXAZOLE [Concomitant]
     Active Substance: SULFAMETHOXAZOLE
     Route: 048
     Dates: start: 20210613, end: 20210701
  41. POTASSIUM CHLORIDE [Concomitant]
     Active Substance: POTASSIUM CHLORIDE
     Indication: Hypokalaemia
     Route: 042
     Dates: start: 20210615, end: 20210623
  42. POTASSIUM CHLORIDE [Concomitant]
     Active Substance: POTASSIUM CHLORIDE
     Dates: start: 20210514, end: 20210531
  43. POTASSIUM CHLORIDE [Concomitant]
     Active Substance: POTASSIUM CHLORIDE
     Route: 048
     Dates: start: 20210630, end: 20210701
  44. POTASSIUM CHLORIDE [Concomitant]
     Active Substance: POTASSIUM CHLORIDE
     Route: 048
     Dates: start: 20210619, end: 20210627
  45. POTASSIUM CHLORIDE [Concomitant]
     Active Substance: POTASSIUM CHLORIDE
     Route: 042
     Dates: start: 20210611, end: 20210613
  46. POTASSIUM CHLORIDE [Concomitant]
     Active Substance: POTASSIUM CHLORIDE
     Route: 042
     Dates: start: 20210613, end: 20210613
  47. POTASSIUM CHLORIDE [Concomitant]
     Active Substance: POTASSIUM CHLORIDE
     Route: 042
     Dates: start: 20210614, end: 20210614
  48. POTASSIUM CHLORIDE [Concomitant]
     Active Substance: POTASSIUM CHLORIDE
     Route: 042
     Dates: start: 20210615, end: 20210616
  49. POTASSIUM CHLORIDE [Concomitant]
     Active Substance: POTASSIUM CHLORIDE
     Route: 042
     Dates: start: 20210615, end: 20210615
  50. POTASSIUM CHLORIDE [Concomitant]
     Active Substance: POTASSIUM CHLORIDE
     Dates: start: 20210701, end: 20210701
  51. THROMBIN [Concomitant]
     Active Substance: THROMBIN
     Indication: Haemostasis
     Route: 048
     Dates: start: 20210616, end: 20210715
  52. FUROSEMIDE [Concomitant]
     Active Substance: FUROSEMIDE
     Dates: start: 20210620, end: 20210625
  53. FUROSEMIDE [Concomitant]
     Active Substance: FUROSEMIDE
     Dates: start: 20210625, end: 20210629
  54. FUROSEMIDE [Concomitant]
     Active Substance: FUROSEMIDE
     Dates: start: 20210630, end: 20210710
  55. FUROSEMIDE [Concomitant]
     Active Substance: FUROSEMIDE
     Dates: start: 20210720, end: 20210720
  56. FUROSEMIDE [Concomitant]
     Active Substance: FUROSEMIDE
     Dates: start: 20210613, end: 20210613
  57. FUROSEMIDE [Concomitant]
     Active Substance: FUROSEMIDE
     Dates: start: 20210719, end: 20210720
  58. FERROUS SUCCINATE [Concomitant]
     Active Substance: FERROUS SUCCINATE
     Indication: Anaemia
     Route: 048
     Dates: start: 20210621, end: 20210701
  59. METHYLCOBALAMIN [Concomitant]
     Active Substance: METHYLCOBALAMIN
     Dates: start: 20210621, end: 20210626
  60. THYMUS GLAND [Concomitant]
     Dates: start: 20210623, end: 20210720
  61. ALBUMIN HUMAN [Concomitant]
     Active Substance: ALBUMIN HUMAN
     Indication: Hypoalbuminaemia
     Dates: start: 20210625
  62. ALBUMIN HUMAN [Concomitant]
     Active Substance: ALBUMIN HUMAN
     Indication: Hypoproteinaemia
     Dates: start: 20210630, end: 20210710
  63. ALBUMIN HUMAN [Concomitant]
     Active Substance: ALBUMIN HUMAN
     Dates: start: 20210718, end: 20210720
  64. SODIUM CHLORIDE [Concomitant]
     Active Substance: SODIUM CHLORIDE
     Dates: start: 20210627, end: 20210630
  65. SODIUM CHLORIDE [Concomitant]
     Active Substance: SODIUM CHLORIDE
     Dates: start: 20210630, end: 20210705
  66. SODIUM CHLORIDE [Concomitant]
     Active Substance: SODIUM CHLORIDE
     Route: 042
     Dates: start: 20210613, end: 20210613
  67. SODIUM CHLORIDE [Concomitant]
     Active Substance: SODIUM CHLORIDE
     Dosage: NEEDLE
     Route: 042
     Dates: start: 20210611, end: 20210613
  68. SODIUM CHLORIDE [Concomitant]
     Active Substance: SODIUM CHLORIDE
     Dates: start: 20210712, end: 20210712
  69. SODIUM CHLORIDE [Concomitant]
     Active Substance: SODIUM CHLORIDE
     Dates: start: 20210618, end: 20210625
  70. SODIUM CHLORIDE [Concomitant]
     Active Substance: SODIUM CHLORIDE
     Dates: start: 20210613, end: 20210613
  71. SODIUM CHLORIDE [Concomitant]
     Active Substance: SODIUM CHLORIDE
     Dates: start: 20210614, end: 20210615
  72. SODIUM CHLORIDE [Concomitant]
     Active Substance: SODIUM CHLORIDE
     Dates: start: 20210627, end: 20210627
  73. SPIRONOLACTONE [Concomitant]
     Active Substance: SPIRONOLACTONE
     Indication: Polyuria
     Dates: start: 20210628, end: 20210630
  74. GLUTATHIONE [Concomitant]
     Active Substance: GLUTATHIONE
     Route: 042
     Dates: start: 20210629, end: 20210707
  75. METHYLCOBALAMIN [Concomitant]
     Active Substance: METHYLCOBALAMIN
     Dates: start: 20210630, end: 20210701
  76. BISOPROLOL [Concomitant]
     Active Substance: BISOPROLOL
     Dates: start: 20210701, end: 20210720
  77. TIGECYCLINE [Concomitant]
     Active Substance: TIGECYCLINE
     Dates: start: 20210718, end: 20210718
  78. TIGECYCLINE [Concomitant]
     Active Substance: TIGECYCLINE
     Dates: start: 20210719, end: 20210719
  79. TIGECYCLINE [Concomitant]
     Active Substance: TIGECYCLINE
     Dates: start: 20210719, end: 20210720
  80. DOXOFYLLINE [Concomitant]
     Active Substance: DOXOFYLLINE
     Indication: Asthma
     Route: 042
     Dates: start: 20210720, end: 20210720
  81. INSULIN NOS [Concomitant]
     Active Substance: INSULIN NOS
     Dates: start: 20210514, end: 20210531
  82. INSULIN NOS [Concomitant]
     Active Substance: INSULIN NOS
     Dates: start: 20210618, end: 20210624
  83. INSULIN NOS [Concomitant]
     Active Substance: INSULIN NOS
     Dates: start: 20210611, end: 20210613
  84. THROMBOPOIETIN [Concomitant]
     Active Substance: THROMBOPOIETIN
     Route: 058
     Dates: start: 20210624, end: 20210707
  85. THROMBOPOIETIN [Concomitant]
     Active Substance: THROMBOPOIETIN
     Route: 058
     Dates: start: 20210712, end: 20210720
  86. THROMBOPOIETIN [Concomitant]
     Active Substance: THROMBOPOIETIN
     Route: 058
     Dates: start: 20210621, end: 20210621
  87. THROMBOPOIETIN [Concomitant]
     Active Substance: THROMBOPOIETIN
     Route: 058
     Dates: start: 20210619, end: 20210619
  88. AMINO ACIDS, SOURCE UNSPECIFIED [Concomitant]
     Active Substance: AMINO ACIDS, SOURCE UNSPECIFIED
     Dates: start: 20210718, end: 20210720
  89. OPRELVEKIN [Concomitant]
     Active Substance: OPRELVEKIN
     Route: 058
     Dates: start: 20210619, end: 20210707
  90. SULFAMETHOXAZOLE [Concomitant]
     Active Substance: SULFAMETHOXAZOLE
     Route: 048
     Dates: start: 20210613, end: 20210701
  91. CYSTEINE\GLYCINE\GLYCYRRHIZIN [Concomitant]
     Active Substance: CYSTEINE\GLYCINE\GLYCYRRHIZIN
     Route: 042
     Dates: start: 20210701, end: 20210707
  92. BUDESONIDE [Concomitant]
     Active Substance: BUDESONIDE
     Route: 055
     Dates: start: 20210715, end: 20210720
  93. BUDESONIDE [Concomitant]
     Active Substance: BUDESONIDE
     Dosage: SUSPENSION
     Route: 055
     Dates: start: 20210612, end: 20210613
  94. BUDESONIDE [Concomitant]
     Active Substance: BUDESONIDE
     Route: 055
     Dates: start: 20210715, end: 20210715
  95. TERBUTALINE [Concomitant]
     Active Substance: TERBUTALINE
     Route: 055
     Dates: start: 20210715, end: 20210720
  96. TERBUTALINE [Concomitant]
     Active Substance: TERBUTALINE
     Route: 055
     Dates: start: 20210715, end: 20210715
  97. COMPOUND AMINO ACID (18AA-I) [Concomitant]
     Dates: start: 20210613, end: 20210613
  98. COMPOUND AMINO ACID (18AA-I) [Concomitant]
     Dates: start: 20210611, end: 20210611
  99. DOPAMINE [Concomitant]
     Active Substance: DOPAMINE HYDROCHLORIDE
     Indication: Blood pressure increased
     Dates: start: 20210617, end: 20210617
  100. DOPAMINE [Concomitant]
     Active Substance: DOPAMINE HYDROCHLORIDE
     Dates: start: 20210702, end: 20210712
  101. RECOMBINANT HUMAN GRANULOCYTE STIMULATING FACTOR (UNK INGREDIENTS) [Concomitant]
     Dates: start: 20210709, end: 20210709
  102. RECOMBINANT HUMAN GRANULOCYTE STIMULATING FACTOR (UNK INGREDIENTS) [Concomitant]
     Dates: start: 20210716, end: 20210716
  103. RECOMBINANT HUMAN GRANULOCYTE STIMULATING FACTOR (UNK INGREDIENTS) [Concomitant]
     Dates: start: 20210714, end: 20210714
  104. OMEPRAZOLE [Concomitant]
     Active Substance: OMEPRAZOLE
     Dates: start: 20210611, end: 20210613
  105. OMEPRAZOLE [Concomitant]
     Active Substance: OMEPRAZOLE
     Dates: start: 20210616, end: 20210626
  106. HEPARIN CALCIUM [Concomitant]
     Active Substance: HEPARIN CALCIUM
     Dates: start: 20210611, end: 20210612
  107. ALBUMIN HUMAN [Concomitant]
     Active Substance: ALBUMIN HUMAN
     Indication: Protein total decreased
     Dates: start: 20210613, end: 20210613
  108. ALBUMIN HUMAN [Concomitant]
     Active Substance: ALBUMIN HUMAN
     Route: 042
     Dates: start: 20210613, end: 20210625
  109. CEFUROXIME [Concomitant]
     Active Substance: CEFUROXIME
     Dosage: POWDER NEEDLE
     Route: 042
     Dates: start: 20210613, end: 20210613
  110. IPRATROPIUM BROMIDE [Concomitant]
     Active Substance: IPRATROPIUM BROMIDE
     Route: 055
     Dates: start: 20210715, end: 20210720
  111. IPRATROPIUM BROMIDE [Concomitant]
     Active Substance: IPRATROPIUM BROMIDE
     Route: 055
     Dates: start: 20210715, end: 20210715
  112. COMPOUND AMINOBARBITAL INJECTION (UNK INGREDIENTS) [Concomitant]
     Route: 030
     Dates: start: 20210713, end: 20210713
  113. PLATELETS [Concomitant]
     Active Substance: HUMAN PLATELET, ALLOGENIC
     Indication: Platelet count decreased
     Dosage: 1 OTHER
     Route: 042
     Dates: start: 20210626, end: 20210626
  114. PLATELETS [Concomitant]
     Active Substance: HUMAN PLATELET, ALLOGENIC
     Dosage: 1 OTHER
     Route: 042
     Dates: start: 20210621, end: 20210621
  115. PLATELETS [Concomitant]
     Active Substance: HUMAN PLATELET, ALLOGENIC
     Dates: start: 20210701, end: 20210701
  116. DIPHENHYDRAMINE [Concomitant]
     Active Substance: DIPHENHYDRAMINE
     Indication: Prophylaxis
     Dates: start: 20210621, end: 20210621
  117. DIPHENHYDRAMINE [Concomitant]
     Active Substance: DIPHENHYDRAMINE
     Dates: start: 20210615, end: 20210617
  118. DIPHENHYDRAMINE [Concomitant]
     Active Substance: DIPHENHYDRAMINE
     Dates: start: 20210703, end: 20210703
  119. UROKINASE [Concomitant]
     Active Substance: UROKINASE
     Indication: Haemorrhage
     Dates: start: 20210621, end: 20210621
  120. HUMAN PLASMA [Concomitant]
     Active Substance: HUMAN PLASMA
     Indication: Anaemia
     Route: 042
     Dates: start: 20210617, end: 20210617
  121. HUMAN RED BLOOD CELL [Concomitant]
     Active Substance: HUMAN RED BLOOD CELL
     Indication: Anaemia
     Dosage: 2 U
     Route: 042
     Dates: start: 20210615, end: 20210617
  122. HUMAN RED BLOOD CELL [Concomitant]
     Active Substance: HUMAN RED BLOOD CELL
     Dosage: 4 U
     Route: 042
     Dates: start: 20210703, end: 20210703
  123. HUMAN RED BLOOD CELL [Concomitant]
     Active Substance: HUMAN RED BLOOD CELL
     Dosage: 2 U
     Dates: start: 20210629, end: 20210630
  124. MAGNESIUM SULFATE [Concomitant]
     Active Substance: MAGNESIUM SULFATE
     Indication: Prophylaxis
     Dates: start: 20210701, end: 20210701
  125. CASTOR OIL [Concomitant]
     Active Substance: CASTOR OIL
     Dates: start: 20210701, end: 20210701
  126. CHLORHEXIDINE [Concomitant]
     Active Substance: CHLORHEXIDINE
     Indication: Prophylaxis
     Dates: start: 20210613, end: 20210621

REACTIONS (2)
  - Immune-mediated lung disease [Fatal]
  - Nausea [Recovered/Resolved]

NARRATIVE: CASE EVENT DATE: 20210611
